FAERS Safety Report 10025659 (Version 2)
Quarter: 2014Q2

REPORT INFORMATION
  Report Type: Spontaneous
  Country: IT (occurrence: IT)
  Receive Date: 20140320
  Receipt Date: 20140507
  Transmission Date: 20141212
  Serious: Yes (Hospitalization)
  Sender: FDA-Public Use
  Company Number: IT-BAYER-2014-039412

PATIENT
  Age: 88 Year
  Sex: Female

DRUGS (9)
  1. CARDIOASPIRIN [Suspect]
     Indication: CORONARY ARTERY DISEASE
     Dosage: DAILY DOSE 100 MG
     Route: 048
     Dates: start: 20110101, end: 20131022
  2. CLEXANE [Suspect]
     Indication: ATRIAL FIBRILLATION
     Dosage: DAILY DOSE 4000 U
     Dates: start: 20121201, end: 20131022
  3. PANTOPRAZOLE [Concomitant]
  4. ATORVASTATIN [Concomitant]
  5. FOLIC ACID [Concomitant]
  6. NIFEREX [Concomitant]
  7. LASIX [Concomitant]
     Dosage: UNK
  8. ZYLORIC [Concomitant]
  9. SELOKEN [Concomitant]

REACTIONS (2)
  - Anaemia [Recovering/Resolving]
  - Haemorrhage [Recovering/Resolving]
